FAERS Safety Report 8873215 (Version 1)
Quarter: 2012Q4

REPORT INFORMATION
  Report Type: 
  Country: FR (occurrence: FR)
  Receive Date: 20121029
  Receipt Date: 20121029
  Transmission Date: 20130627
  Serious: Yes (Other)
  Sender: FDA-Public Use
  Company Number: FR-MYLANLABS-2012S1021449

PATIENT
  Age: 4 Year
  Sex: Male
  Weight: 16 kg

DRUGS (5)
  1. VANCOMYCINE [Suspect]
     Indication: OSTEITIS
     Route: 042
     Dates: start: 20121001, end: 20121001
  2. UNSPECIFIED INGREDIENT [Suspect]
     Indication: RADIOISOTOPE SCAN
     Route: 042
     Dates: start: 20121001
  3. ROCEPHINE [Concomitant]
     Indication: PRODUCT USED FOR UNKNOWN INDICATION
     Dates: start: 20121001
  4. GENTAMYCINE [Concomitant]
     Indication: PRODUCT USED FOR UNKNOWN INDICATION
     Dates: start: 20121001
  5. NUBAIN [Concomitant]
     Indication: PRODUCT USED FOR UNKNOWN INDICATION
     Dates: start: 20121001

REACTIONS (4)
  - Face oedema [Recovered/Resolved]
  - Rash [Recovered/Resolved]
  - Pruritus [Recovered/Resolved]
  - Localised oedema [None]
